FAERS Safety Report 6686486-0 (Version None)
Quarter: 2010Q2

REPORT INFORMATION
  Report Type: 
  Country: None (occurrence: None)
  Receive Date: 20100415
  Receipt Date: 20100408
  Transmission Date: 20101027
  Serious: Yes (Death, Hospitalization)
  Sender: FDA-Public Use
  Company Number: TPA2010A01251

PATIENT
  Age: 84 Year
  Sex: Female
  Weight: 59 kg

DRUGS (18)
  1. ULORIC [Suspect]
     Indication: GOUT
     Dosage: 80 MG, 1 IN 1 D, PER ORAL
     Route: 048
  2. OMEPRAZOLE [Suspect]
     Indication: GASTRIC ULCER
     Dosage: 40 MG, 2 IN 1 D
     Dates: start: 20100308, end: 20100318
  3. OMEPRAZOLE [Suspect]
     Indication: HELICOBACTER GASTRITIS
     Dosage: 40 MG, 2 IN 1 D
     Dates: start: 20100308, end: 20100318
  4. AMOXICILLIN [Suspect]
     Indication: GASTRIC ULCER
     Dosage: 1000 MG, 2 IN 1 D
     Dates: start: 20100310, end: 20100318
  5. AMOXICILLIN [Suspect]
     Indication: HELICOBACTER INFECTION
     Dosage: 1000 MG, 2 IN 1 D
     Dates: start: 20100310, end: 20100318
  6. BIAXIN [Suspect]
     Indication: HELICOBACTER INFECTION
     Dosage: 500 MG, 2 IN 1 D,
     Dates: start: 20100310, end: 20100318
  7. COLCHICINE (COLCHICINE) [Suspect]
     Indication: GOUT
     Dosage: 0.6 MG, 2 IN 1 D,
     Dates: start: 20100308, end: 20100316
  8. POTASSIUM (POTASSIUM) [Concomitant]
  9. LIDOCAINE PATCH (LIDOCAINE) [Concomitant]
  10. REGLAN [Concomitant]
  11. MULTIVITAMIN [Concomitant]
  12. TOPROL-XL [Concomitant]
  13. VYTRON C (ALL OTHER THERAPEUTIC PRODUCTS) [Concomitant]
  14. VICODIN [Concomitant]
  15. PEPTO-BISMOL (BISMUTH SUBSALICYLATE) [Concomitant]
  16. ZOFRAN [Concomitant]
  17. LASIX [Concomitant]
  18. NEUPOGEN [Concomitant]

REACTIONS (19)
  - ANURIA [None]
  - ASPARTATE AMINOTRANSFERASE INCREASED [None]
  - ATELECTASIS [None]
  - B-CELL LYMPHOMA [None]
  - BLOOD ALBUMIN DECREASED [None]
  - BLOOD ALKALINE PHOSPHATASE INCREASED [None]
  - BLOOD CALCIUM DECREASED [None]
  - CARDIO-RESPIRATORY ARREST [None]
  - CONDITION AGGRAVATED [None]
  - DEHYDRATION [None]
  - GOUT [None]
  - HYPOPHAGIA [None]
  - LOBAR PNEUMONIA [None]
  - NAUSEA [None]
  - PANCYTOPENIA [None]
  - RENAL FAILURE ACUTE [None]
  - RESPIRATORY ARREST [None]
  - SEPSIS [None]
  - VOMITING [None]
